FAERS Safety Report 7586941-5 (Version None)
Quarter: 2011Q3

REPORT INFORMATION
  Report Type: 
  Country: None (occurrence: None)
  Receive Date: 20110701
  Receipt Date: 20100324
  Transmission Date: 20111222
  Serious: Yes (Other)
  Sender: FDA-Public Use
  Company Number: GR-UCBSA-009397

PATIENT
  Age: 34 Year
  Sex: Male

DRUGS (2)
  1. LEVOCETIRIZINE DIHYDROCHLORIDE [Suspect]
     Dosage: 1 TABLET AT 10 PM
     Route: 048
  2. LEVOCETIRIZINE DIHYDROCHLORIDE [Suspect]
     Indication: RHINITIS ALLERGIC
     Route: 048

REACTIONS (1)
  - IRIDOCYCLITIS [None]
